FAERS Safety Report 5940222-1 (Version None)
Quarter: 2008Q4

REPORT INFORMATION
  Report Type: 
  Country: None (occurrence: None)
  Receive Date: 20081031
  Receipt Date: 20081031
  Transmission Date: 20090506
  Serious: Yes (Life-Threatening)
  Sender: FDA-Public Use
  Company Number: None

PATIENT
  Age: 50 Year
  Sex: Male

DRUGS (1)
  1. SUMATRIPTAN [Suspect]
     Indication: MIGRAINE
     Dosage: 6 MG ONCE SQ
     Route: 058
     Dates: start: 20080916, end: 20080916

REACTIONS (20)
  - BLOOD PRESSURE IMMEASURABLE [None]
  - BRADYCARDIA [None]
  - CARDIO-RESPIRATORY ARREST [None]
  - ELECTROMECHANICAL DISSOCIATION [None]
  - HEART RATE DECREASED [None]
  - HYPOTENSION [None]
  - LOSS OF CONSCIOUSNESS [None]
  - MUSCLE RIGIDITY [None]
  - NAUSEA [None]
  - NODAL RHYTHM [None]
  - PALLOR [None]
  - PALPITATIONS [None]
  - POSTURING [None]
  - PULSE ABNORMAL [None]
  - PULSE ABSENT [None]
  - PUPILLARY LIGHT REFLEX TESTS ABNORMAL [None]
  - URINARY INCONTINENCE [None]
  - VENTRICULAR FIBRILLATION [None]
  - VENTRICULAR TACHYCARDIA [None]
  - VOMITING [None]
